FAERS Safety Report 20388255 (Version 1)
Quarter: 2022Q1

REPORT INFORMATION
  Report Type: Spontaneous
  Country: US (occurrence: US)
  Receive Date: 20220128
  Receipt Date: 20220128
  Transmission Date: 20220423
  Serious: No
  Sender: FDA-Public Use
  Company Number: US-ALLERGAN-2139375US

PATIENT
  Sex: Female

DRUGS (2)
  1. BOTOX [Suspect]
     Active Substance: ONABOTULINUMTOXINA
     Indication: Migraine
     Dosage: 195 UNITS, SINGLE
     Dates: start: 20211111, end: 20211111
  2. EMGALITY [Concomitant]
     Active Substance: GALCANEZUMAB-GNLM
     Indication: Migraine

REACTIONS (3)
  - Product preparation error [Unknown]
  - Migraine [Not Recovered/Not Resolved]
  - Therapeutic response shortened [Unknown]
